FAERS Safety Report 11826212 (Version 1)
Quarter: 2015Q4

REPORT INFORMATION
  Report Type: Spontaneous
  Country: GB (occurrence: GB)
  Receive Date: 20151211
  Receipt Date: 20151211
  Transmission Date: 20160305
  Serious: Yes (Other)
  Sender: FDA-Public Use
  Company Number: PHHY2015GB158070

PATIENT
  Age: 5 Year

DRUGS (1)
  1. ILARIS [Suspect]
     Active Substance: CANAKINUMAB
     Indication: PRODUCT USED FOR UNKNOWN INDICATION
     Route: 065

REACTIONS (11)
  - Pyrexia [Unknown]
  - Rash [Unknown]
  - Malaise [Unknown]
  - Arthritis [Unknown]
  - General physical health deterioration [Unknown]
  - Toxicity to various agents [Unknown]
  - Juvenile idiopathic arthritis [Unknown]
  - Histiocytosis haematophagic [Unknown]
  - No therapeutic response [Unknown]
  - Pancytopenia [Unknown]
  - Hyperferritinaemia [Unknown]

NARRATIVE: CASE EVENT DATE: 201412
